FAERS Safety Report 14386528 (Version 1)
Quarter: 2018Q1

REPORT INFORMATION
  Report Type: Spontaneous
  Country: US (occurrence: US)
  Receive Date: 20180115
  Receipt Date: 20180115
  Transmission Date: 20180509
  Serious: Yes (Other)
  Sender: FDA-Public Use
  Company Number: US-SA-2017SA149641

PATIENT
  Age: 66 Year
  Sex: Female
  Weight: 56.7 kg

DRUGS (5)
  1. PARAPLATIN [Concomitant]
     Active Substance: CARBOPLATIN
     Route: 042
  2. TAXOTERE [Suspect]
     Active Substance: DOCETAXEL
     Indication: LUNG NEOPLASM MALIGNANT
     Route: 051
     Dates: start: 20160720, end: 20160720
  3. TAXOTERE [Suspect]
     Active Substance: DOCETAXEL
     Indication: LUNG NEOPLASM MALIGNANT
     Route: 051
     Dates: start: 20151228, end: 20151228
  4. XGEVA [Concomitant]
     Active Substance: DENOSUMAB
  5. TARCEVA [Concomitant]
     Active Substance: ERLOTINIB HYDROCHLORIDE
     Route: 065

REACTIONS (4)
  - Anxiety [Unknown]
  - Impaired quality of life [Unknown]
  - Alopecia [Not Recovered/Not Resolved]
  - Emotional distress [Unknown]

NARRATIVE: CASE EVENT DATE: 20160101
